FAERS Safety Report 10451324 (Version 6)
Quarter: 2014Q4

REPORT INFORMATION
  Report Type: Report from Study
  Country: NL (occurrence: NL)
  Receive Date: 20140912
  Receipt Date: 20141202
  Transmission Date: 20150528
  Serious: Yes (Hospitalization)
  Sender: FDA-Public Use
  Company Number: NL-MERCK-1409NLD003600

PATIENT
  Age: 79 Year
  Sex: Female

DRUGS (8)
  1. PEMBROLIZUMAB. [Suspect]
     Active Substance: PEMBROLIZUMAB
     Indication: MALIGNANT MELANOMA
     Dosage: UNK, Q3W
     Route: 042
     Dates: start: 20130905, end: 20140724
  2. METOPROLOL [Concomitant]
     Active Substance: METOPROLOL
     Indication: LEFT VENTRICULAR HYPERTROPHY
     Dosage: 25 MG, QD
     Route: 048
     Dates: start: 20130814
  3. ESOMEPRAZOLE [Concomitant]
     Active Substance: ESOMEPRAZOLE
     Indication: PROPHYLAXIS
     Dosage: 40 MG, QD
     Route: 048
     Dates: start: 20130814
  4. PEMBROLIZUMAB. [Suspect]
     Active Substance: PEMBROLIZUMAB
     Dosage: UNK, Q3W
     Route: 042
     Dates: start: 20140903
  5. LATANOPROST (+) TIMOLOL MALEATE [Concomitant]
     Indication: GLAUCOMA
     Dosage: 1 GTT, QD
     Route: 047
     Dates: start: 20130814
  6. CARBASPIRIN CALCIUM [Concomitant]
     Active Substance: CARBASPIRIN CALCIUM
     Indication: LEFT VENTRICULAR HYPERTROPHY
     Dosage: 100 MG, QD
     Route: 048
     Dates: start: 20130814
  7. PEMBROLIZUMAB. [Suspect]
     Active Substance: PEMBROLIZUMAB
     Dosage: UNK, Q3W
     Route: 042
     Dates: start: 20140814, end: 20140814
  8. SIMVASTATIN. [Concomitant]
     Active Substance: SIMVASTATIN
     Indication: HYPERCHOLESTEROLAEMIA
     Dosage: 20 MG, QD
     Route: 048
     Dates: start: 20130814

REACTIONS (2)
  - Cholangitis [Not Recovered/Not Resolved]
  - Rectal cancer [Not Recovered/Not Resolved]

NARRATIVE: CASE EVENT DATE: 20140818
